FAERS Safety Report 7430521-9 (Version None)
Quarter: 2011Q2

REPORT INFORMATION
  Report Type: 
  Country: None (occurrence: None)
  Receive Date: 20110421
  Receipt Date: 20110218
  Transmission Date: 20111010
  Serious: No
  Sender: FDA-Public Use
  Company Number: US-ASTRAZENECA-2011SE09454

PATIENT
  Age: 62 Year
  Sex: Male

DRUGS (1)
  1. TOPROL-XL [Suspect]
     Route: 048

REACTIONS (4)
  - EYE DISORDER [None]
  - SENSORY DISTURBANCE [None]
  - CONFUSIONAL STATE [None]
  - HALLUCINATION [None]
